FAERS Safety Report 7334823-6 (Version None)
Quarter: 2011Q1

REPORT INFORMATION
  Report Type: 
  Country: None (occurrence: None)
  Receive Date: 20110307
  Receipt Date: 20110224
  Transmission Date: 20110831
  Serious: Yes (Other)
  Sender: FDA-Public Use
  Company Number: US-AMGEN-QUU406173

PATIENT
  Age: 48 Year
  Sex: Female
  Weight: 74.5 kg

DRUGS (10)
  1. LABETALOL HCL [Concomitant]
  2. LANSOPRAZOLE [Concomitant]
  3. AMLODIPINE [Concomitant]
  4. MYCOPHENOLATE MOFETIL [Concomitant]
  5. PREDNISONE [Concomitant]
     Dosage: UNK UNK, UNK
     Dates: start: 20080612
  6. CORTICOSTEROID NOS [Concomitant]
     Dosage: UNK UNK, UNK
     Dates: start: 20080621
  7. NPLATE [Suspect]
     Indication: IDIOPATHIC THROMBOCYTOPENIC PURPURA
     Dosage: 170 A?G, Q2WK
     Route: 058
     Dates: start: 20080918, end: 20100312
  8. DANAZOL [Concomitant]
     Dosage: UNK UNK, UNK
     Dates: start: 20080731
  9. CYANOCOBALAMIN [Concomitant]
     Dosage: UNK UNK, UNK
     Dates: start: 20090710
  10. CYCLOBENZAPRINE [Concomitant]

REACTIONS (2)
  - MYELOFIBROSIS [None]
  - RED BLOOD CELL SCHISTOCYTES PRESENT [None]
